FAERS Safety Report 9346711 (Version 1)
Quarter: 2013Q2

REPORT INFORMATION
  Report Type: Spontaneous
  Country: US (occurrence: US)
  Receive Date: 20130613
  Receipt Date: 20130613
  Transmission Date: 20140414
  Serious: Yes (Death, Other)
  Sender: FDA-Public Use
  Company Number: US-BRISTOL-MYERS SQUIBB COMPANY-18966408

PATIENT
  Age: 69 Year
  Sex: Female

DRUGS (2)
  1. ONGLYZA TABS [Suspect]
  2. JANUVIA [Suspect]

REACTIONS (2)
  - Cardio-respiratory arrest [Fatal]
  - Cold type haemolytic anaemia [Unknown]
